FAERS Safety Report 9580561 (Version 2)
Quarter: 2013Q4

REPORT INFORMATION
  Report Type: Report from Study
  Country: BR (occurrence: BR)
  Receive Date: 20131002
  Receipt Date: 20131106
  Transmission Date: 20140711
  Serious: Yes (Other)
  Sender: FDA-Public Use
  Company Number: BR-INCYTE CORPORATION-2013IN002242

PATIENT
  Sex: 0

DRUGS (4)
  1. INC424 [Suspect]
     Indication: MYELOFIBROSIS
     Dosage: 20 MG, EVERY 12 HOURS
     Dates: start: 201212
  2. INC424 [Suspect]
     Dosage: 10 MG, EVERY 12 HOURS
  3. INC424 [Suspect]
     Dosage: 10 MG, EVERY 12 HOURS
  4. INSULIN [Concomitant]

REACTIONS (4)
  - Tuberculoid leprosy [Recovering/Resolving]
  - Diabetic foot infection [Recovered/Resolved]
  - Anaemia [Unknown]
  - Neutropenia [Unknown]
